FAERS Safety Report 4380870-6 (Version None)
Quarter: 2004Q2

REPORT INFORMATION
  Report Type: 
  Country: None (occurrence: None)
  Receive Date: 20040616
  Receipt Date: 20040601
  Transmission Date: 20050107
  Serious: Yes (Hospitalization)
  Sender: FDA-Public Use
  Company Number: JP_040402938

PATIENT
  Age: 76 Year
  Sex: Female

DRUGS (12)
  1. PERMAX [Suspect]
     Indication: PARKINSON'S DISEASE
     Dosage: 1000 UG DAY
  2. CARBIDOPA AND LEVODOPA [Concomitant]
  3. PRIMPERAN TAB [Concomitant]
  4. NAUZELIN (DOMPERIDONE) [Concomitant]
  5. SELEGILINE HYDROCHLORIDE [Concomitant]
  6. DOMIN (TALIPEXOLE HYDROCHLORIDE) [Concomitant]
  7. MUCOSTA (REBAMIPIDE) [Concomitant]
  8. DOPS (DROXIDOPA) [Concomitant]
  9. MARZULENE S [Concomitant]
  10. CHINESE MEDICINE [Concomitant]
  11. MEDICON (DEXTROMETHORPHAN HYDROBROMIDE) [Concomitant]
  12. LAXOBERON (SODIUM PICOSULFATE) [Concomitant]

REACTIONS (11)
  - BLOOD ALBUMIN INCREASED [None]
  - BLOOD CHLORIDE DECREASED [None]
  - BLOOD OSMOLARITY DECREASED [None]
  - COUGH [None]
  - DECREASED APPETITE [None]
  - DYSKINESIA [None]
  - HYPOAESTHESIA [None]
  - INAPPROPRIATE ANTIDIURETIC HORMONE SECRETION [None]
  - MASKED FACIES [None]
  - OEDEMA PERIPHERAL [None]
  - TONGUE DRY [None]
